FAERS Safety Report 5141502-2 (Version None)
Quarter: 2006Q4

REPORT INFORMATION
  Report Type: 
  Country: None (occurrence: None)
  Receive Date: 20061101
  Receipt Date: 20060829
  Transmission Date: 20070319
  Serious: Yes (Hospitalization)
  Sender: FDA-Public Use
  Company Number: US-AVENTIS-200618966GDDC

PATIENT
  Age: 75 Year
  Sex: Male
  Weight: 93 kg

DRUGS (8)
  1. TAXOTERE [Suspect]
     Indication: NON-SMALL CELL LUNG CANCER
     Route: 042
     Dates: start: 20060711, end: 20060711
  2. CISPLATIN [Suspect]
     Indication: NON-SMALL CELL LUNG CANCER
     Route: 042
     Dates: start: 20060711, end: 20060711
  3. LIPITOR [Concomitant]
     Dosage: DOSE: UNK
  4. METOPROLOL TARTRATE [Concomitant]
     Dosage: DOSE: UNK
  5. LOTENSIN [Concomitant]
     Dosage: DOSE: UNK
  6. CITALOPRAM HYDROBROMIDE [Concomitant]
     Route: 048
  7. PRILOSEC                           /00661201/ [Concomitant]
     Route: 048
  8. COUMADIN [Concomitant]
     Route: 048

REACTIONS (12)
  - ATRIAL FIBRILLATION [None]
  - BLOOD CULTURE POSITIVE [None]
  - DEHYDRATION [None]
  - DIARRHOEA [None]
  - HAEMATOCRIT DECREASED [None]
  - HAEMOGLOBIN DECREASED [None]
  - HYPOTENSION [None]
  - INCISION SITE COMPLICATION [None]
  - PYREXIA [None]
  - STAPHYLOCOCCAL INFECTION [None]
  - SUTURE RUPTURE [None]
  - WOUND COMPLICATION [None]
